FAERS Safety Report 7309559 (Version 4)
Quarter: 2012Q4

REPORT INFORMATION
  Report Type: Report from Study
  Country: DE (occurrence: JP)
  Receive Date: 20100309
  Receipt Date: 20121231
  Transmission Date: 20130627
  Serious: Yes (Life-Threatening, Hospitalization, Other)
  Sender: FDA-Public Use
  Company Number: JP-BRISTOL-MYERS SQUIBB COMPANY-14931786

PATIENT
  Age: 66 Year
  Sex: Male
  Weight: 70 kg

DRUGS (6)
  1. ERBITUX SOLN FOR INF 5MG/ML [Suspect]
     Indication: RECTAL CANCER
     Dosage: 693 mg on 02Dec09
445 mg from 09Dec09
16Dec09:3Inf
Recent 400mg/M2:1/Wk:IV.reduced 250mg/m2
     Route: 041
     Dates: start: 20091202
  2. IRINOTECAN HCL [Suspect]
     Indication: RECTAL CANCER
     Dosage: 100mg/m2.IV:1 per 2 Weeks
     Route: 041
     Dates: start: 20091202
  3. TEGAFUR + GIMERACIL + OTERACIL POTASSIUM [Suspect]
     Indication: RECTAL CANCER
     Dosage: form = capsules.Also 40mg/M2:2Per1Day
     Route: 048
     Dates: start: 20091202, end: 20091209
  4. POLARAMINE [Concomitant]
     Indication: PREMEDICATION
     Route: 042
  5. DECADRON [Concomitant]
     Indication: PREMEDICATION
     Route: 042
  6. PRIMPERAN [Concomitant]
     Indication: ANTIEMETIC SUPPORTIVE CARE
     Route: 042
     Dates: start: 20091207, end: 20091216

REACTIONS (7)
  - Gastrointestinal haemorrhage [Recovered/Resolved]
  - Anaemia [Recovering/Resolving]
  - Hypotension [Recovered/Resolved]
  - Gastric ulcer [Recovering/Resolving]
  - Fatigue [Unknown]
  - Decreased appetite [Unknown]
  - Acne [Not Recovered/Not Resolved]
